FAERS Safety Report 8273224-3 (Version None)
Quarter: 2012Q2

REPORT INFORMATION
  Report Type: 
  Country: None (occurrence: None)
  Receive Date: 20120411
  Receipt Date: 20120404
  Transmission Date: 20120825
  Serious: Yes (Disabling)
  Sender: FDA-Public Use
  Company Number: US-PFIZER INC-2012086134

PATIENT

DRUGS (1)
  1. DEPO-PROVERA [Suspect]
     Dosage: 150 MG, (1 INJECTION EVERY 12 WEEKS)

REACTIONS (1)
  - RHEUMATOID ARTHRITIS [None]
